FAERS Safety Report 21906867 (Version 1)
Quarter: 2023Q1

REPORT INFORMATION
  Report Type: Spontaneous
  Country: CO (occurrence: CO)
  Receive Date: 20230125
  Receipt Date: 20230125
  Transmission Date: 20230417
  Serious: Yes (Other)
  Sender: FDA-Public Use
  Company Number: CO-BAYER-2023A009492

PATIENT
  Sex: Female

DRUGS (1)
  1. EYLEA [Suspect]
     Active Substance: AFLIBERCEPT
     Indication: Product used for unknown indication
     Dosage: 2 MG, SOLUTION FOR INJECTION, STRENGTH: 40MG/ML

REACTIONS (3)
  - Glaucoma [Unknown]
  - Retinal disorder [Unknown]
  - Visual impairment [Unknown]
